FAERS Safety Report 4966491-2 (Version None)
Quarter: 2006Q2

REPORT INFORMATION
  Report Type: 
  Country: None (occurrence: None)
  Receive Date: 20060407
  Receipt Date: 20060327
  Transmission Date: 20061013
  Serious: Yes (Death, Other)
  Sender: FDA-Public Use
  Company Number: DE-BRISTOL-MYERS SQUIBB COMPANY-13328521

PATIENT
  Age: 72 Year
  Sex: Female

DRUGS (1)
  1. METHOTREXATE [Suspect]

REACTIONS (5)
  - MEDICATION ERROR [None]
  - OVERDOSE [None]
  - PANCYTOPENIA [None]
  - SEPTIC SHOCK [None]
  - SYSTEMIC MYCOSIS [None]
